FAERS Safety Report 15221142 (Version 4)
Quarter: 2019Q4

REPORT INFORMATION
  Report Type: Spontaneous
  Country: PT (occurrence: PT)
  Receive Date: 20180731
  Receipt Date: 20191230
  Transmission Date: 20200122
  Serious: Yes (Life-Threatening, Hospitalization, Other)
  Sender: FDA-Public Use
  Company Number: PT-AUROBINDO-AUR-APL-2018-038679

PATIENT
  Age: 48 Year
  Sex: Female
  Weight: 77 kg

DRUGS (20)
  1. BUPROPION. [Interacting]
     Active Substance: BUPROPION
     Indication: WEIGHT DECREASED
     Dosage: 100 MILLIGRAM, TWO TIMES A DAY
     Route: 048
     Dates: start: 201708, end: 201804
  2. BUPROPION. [Interacting]
     Active Substance: BUPROPION
     Dosage: 100 MILLIGRAM, TWO TIMES A DAY
     Route: 048
     Dates: start: 201708, end: 201804
  3. CENTELLA ASIATICA NH [Interacting]
     Active Substance: CENTELLA ASIATICA\HERBALS
     Indication: WEIGHT DECREASED
     Dosage: 200 MILLIGRAM, TWO TIMES A DAY
     Route: 048
     Dates: start: 201708, end: 201804
  4. METFORMIN FILM-COATED TABLET [Suspect]
     Active Substance: METFORMIN HYDROCHLORIDE
     Indication: WEIGHT DECREASED
     Dosage: 400 MILLIGRAM, ONCE A DAY
     Route: 048
     Dates: start: 201708, end: 201804
  5. FUROSEMIDE. [Interacting]
     Active Substance: FUROSEMIDE
     Indication: WEIGHT DECREASED
     Dosage: 40 MILLIGRAM, TWO TIMES A DAY
     Route: 048
     Dates: start: 201708, end: 201804
  6. PHENOLPHTHALEIN [Interacting]
     Active Substance: PHENOLPHTHALEIN
     Indication: WEIGHT DECREASED
     Dosage: 80 MILLIGRAM, TWO TIMES A DAY
     Route: 048
     Dates: start: 201708, end: 201804
  7. CASCARA [Suspect]
     Active Substance: RHAMNUS PURSHIANA BARK EXTRACT
     Indication: WEIGHT DECREASED
     Dosage: 2 MILLIGRAM, DAILY
     Route: 048
     Dates: start: 201708, end: 201804
  8. FUROSEMIDE. [Interacting]
     Active Substance: FUROSEMIDE
     Dosage: 80 MILLIGRAM, ONCE A DAY
     Route: 065
  9. TOPIRAMATE. [Interacting]
     Active Substance: TOPIRAMATE
     Indication: WEIGHT DECREASED
     Dosage: 10 MILLIGRAM, TWO TIMES A DAY
     Route: 048
     Dates: start: 201708, end: 201804
  10. CASCARA [Suspect]
     Active Substance: RHAMNUS PURSHIANA BARK EXTRACT
     Dosage: 200 MILLIGRAM, DAILY
     Route: 048
     Dates: start: 201708, end: 201804
  11. CHLORDIAZEPOXIDE. [Interacting]
     Active Substance: CHLORDIAZEPOXIDE
     Dosage: 10 MILLIGRAM, ONCE A DAY
     Route: 048
     Dates: start: 201708, end: 201804
  12. METFORMIN [Interacting]
     Active Substance: METFORMIN HYDROCHLORIDE
     Indication: WEIGHT DECREASED
     Dosage: 200MG
     Route: 048
     Dates: start: 201708, end: 201804
  13. CHLORDIAZEPOXIDE. [Interacting]
     Active Substance: CHLORDIAZEPOXIDE
     Indication: WEIGHT DECREASED
     Dosage: 20 MILLIGRAM, ONCE A DAY, 10MG
     Route: 048
     Dates: start: 201708, end: 201804
  14. ORLISTAT CAPSULES [Interacting]
     Active Substance: ORLISTAT
     Indication: WEIGHT DECREASED
     Dosage: 50 MILLIGRAM, TWO TIMES A DAY
     Route: 048
     Dates: start: 201708, end: 201804
  15. TOPIRAMATE. [Interacting]
     Active Substance: TOPIRAMATE
     Dosage: 20 MILLIGRAM, TWO TIMES A DAY
     Route: 048
     Dates: start: 201708, end: 201804
  16. CHROMIUM PICOLINATE [Interacting]
     Active Substance: CHROMIUM PICOLINATE
     Indication: WEIGHT DECREASED
     Dosage: 200 MICROGRAM, TWO TIMES A DAY
     Route: 048
     Dates: start: 201708, end: 201804
  17. MINULET [Interacting]
     Active Substance: ETHINYL ESTRADIOL\GESTODENE
     Indication: CONTRACEPTION
     Dosage: 1 DOSAGE FORM, ONCE A DAY
     Route: 048
     Dates: start: 201711, end: 201804
  18. XENICAL [Suspect]
     Active Substance: ORLISTAT
     Indication: WEIGHT DECREASED
     Dosage: 100 MILLIGRAM, ONCE A DAY
     Route: 048
  19. CASSIA VIRGINICA [SENNA OCCIDENTALIS] [Suspect]
     Active Substance: SENNA OCCIDENTALIS
     Indication: PRODUCT USED FOR UNKNOWN INDICATION
     Dosage: 20 MILLIGRAM
     Route: 065
  20. FLECAINIDE [Concomitant]
     Active Substance: FLECAINIDE
     Indication: VENTRICULAR EXTRASYSTOLES
     Dosage: 100 MILLIGRAM, ONCE A DAY
     Route: 048
     Dates: start: 201605

REACTIONS (7)
  - Headache [Recovering/Resolving]
  - Cerebral venous thrombosis [Recovering/Resolving]
  - Psychomotor retardation [Recovering/Resolving]
  - Product use in unapproved indication [Unknown]
  - Thalamic infarction [Not Recovered/Not Resolved]
  - Bradyphrenia [Recovering/Resolving]
  - Fatigue [Recovering/Resolving]

NARRATIVE: CASE EVENT DATE: 201708
